FAERS Safety Report 5001892-8 (Version None)
Quarter: 2006Q2

REPORT INFORMATION
  Report Type: 
  Country: None (occurrence: None)
  Receive Date: 20060515
  Receipt Date: 20031001
  Transmission Date: 20061013
  Serious: Yes (Hospitalization)
  Sender: FDA-Public Use
  Company Number: US-MERCK-0310USA00220

PATIENT
  Age: 57 Year
  Sex: Male

DRUGS (8)
  1. MAXALT [Suspect]
     Indication: CLUSTER HEADACHE
     Route: 048
  2. MAXALT [Suspect]
     Route: 048
  3. HYDROCHLOROTHIAZIDE [Concomitant]
     Indication: HYPERTENSION
     Route: 065
  4. VALSARTAN [Concomitant]
     Indication: HYPERTENSION
     Route: 065
  5. INDOMETHACIN [Concomitant]
     Indication: CLUSTER HEADACHE
     Route: 065
  6. FIORICET TABLETS [Concomitant]
     Indication: CLUSTER HEADACHE
     Route: 065
  7. PREDNISONE [Concomitant]
     Indication: CLUSTER HEADACHE
     Route: 065
  8. HYDROCODONE BITARTRATE [Concomitant]
     Route: 065

REACTIONS (2)
  - OFF LABEL USE [None]
  - RENAL INFARCT [None]
